FAERS Safety Report 15425595 (Version 3)
Quarter: 2018Q3

REPORT INFORMATION
  Report Type: Spontaneous
  Country: DE (occurrence: DE)
  Receive Date: 20180925
  Receipt Date: 20180925
  Transmission Date: 20181010
  Serious: Yes (Death, Life-Threatening, Hospitalization, Other)
  Sender: FDA-Public Use
  Company Number: PHHY2018DE105768

PATIENT
  Age: 73 Year
  Sex: Female
  Weight: 69 kg

DRUGS (38)
  1. METFORMIN HYDROCHLORIDE. [Suspect]
     Active Substance: METFORMIN HYDROCHLORIDE
     Indication: DIABETES MELLITUS
     Dosage: 250 MG,UNK
     Route: 048
     Dates: start: 20010616, end: 20010714
  2. CAPTOPRIL. [Suspect]
     Active Substance: CAPTOPRIL
     Indication: CORONARY ARTERY DISEASE
     Dosage: UNK
     Route: 048
     Dates: start: 20010616, end: 20010714
  3. PANTOPRAZOLE SODIUM. [Suspect]
     Active Substance: PANTOPRAZOLE SODIUM
     Dosage: 40 MG,QD
     Route: 048
     Dates: start: 20010616, end: 20010714
  4. YEAST DRIED [Suspect]
     Active Substance: YEAST
     Indication: DIARRHOEA
     Dosage: 300 MG,UNK
     Route: 048
     Dates: start: 20010711, end: 20010714
  5. METOLAZONE. [Suspect]
     Active Substance: METOLAZONE
     Indication: HYPERTENSION
     Dosage: 2 MG,UNK
     Route: 048
     Dates: start: 20010712, end: 20010713
  6. ROCEPHIN [Suspect]
     Active Substance: CEFTRIAXONE SODIUM
     Indication: PYREXIA
     Dosage: 2 G, QD
     Route: 042
     Dates: start: 20010629, end: 20010703
  7. PLAVIX [Suspect]
     Active Substance: CLOPIDOGREL BISULFATE
     Indication: CORONARY ARTERY DISEASE
     Dosage: 75 MG,UNK
     Route: 048
     Dates: start: 20010704, end: 20010714
  8. DIGOXIN. [Suspect]
     Active Substance: DIGOXIN
     Indication: CORONARY ARTERY DISEASE
     Dosage: UNK UNK,UNK
     Route: 048
     Dates: start: 20010703, end: 20010714
  9. NORVASC [Suspect]
     Active Substance: AMLODIPINE BESYLATE
     Indication: CORONARY ARTERY DISEASE
     Dosage: 5 MG,UNK
     Route: 048
     Dates: start: 20010703, end: 20010714
  10. GLIMEPIRIDE. [Concomitant]
     Active Substance: GLIMEPIRIDE
     Indication: PRODUCT USED FOR UNKNOWN INDICATION
     Dosage: UNK
     Route: 065
  11. METOCLOPRAMIDE HYDROCHLORIDE. [Suspect]
     Active Substance: METOCLOPRAMIDE HYDROCHLORIDE
     Indication: NAUSEA
     Dosage: 7 MG,UNK
     Route: 048
     Dates: start: 20010704, end: 20010712
  12. PREDNISOLONE. [Suspect]
     Active Substance: PREDNISOLONE
     Indication: DYSPNOEA
     Dosage: 50 MG,UNK
     Route: 042
     Dates: start: 20010703, end: 20010703
  13. MOLSIDOMINE [Suspect]
     Active Substance: MOLSIDOMINE
     Indication: CORONARY ARTERY DISEASE
     Dosage: 8 MG,QD
     Route: 048
     Dates: start: 20010703, end: 20010714
  14. CARBIMAZOLE [Suspect]
     Active Substance: CARBIMAZOLE
     Indication: PYREXIA
     Dosage: 30 MG,QD
     Route: 048
     Dates: start: 20010621, end: 20010714
  15. LANTUS [Suspect]
     Active Substance: INSULIN GLARGINE
     Indication: DIABETES MELLITUS
     Dosage: 16 IU,UNK
     Route: 058
     Dates: start: 20010616, end: 20010629
  16. CLORAZEPATE DIPOTASSIUM. [Suspect]
     Active Substance: CLORAZEPATE DIPOTASSIUM
     Indication: RESTLESSNESS
     Dosage: 10 MG,UNK
     Route: 048
     Dates: start: 20010710, end: 20010714
  17. CONCOR [Suspect]
     Active Substance: BISOPROLOL FUMARATE
     Indication: CORONARY ARTERY DISEASE
     Dosage: 8 MG,UNK
     Route: 048
     Dates: start: 20010616, end: 20010714
  18. DIAZEPAM. [Suspect]
     Active Substance: DIAZEPAM
     Indication: RESTLESSNESS
     Dosage: 5 MG,UNK
     Route: 048
     Dates: start: 20010616, end: 20010703
  19. EUNERPAN [Suspect]
     Active Substance: MELPERONE HYDROCHLORIDE
     Indication: RESTLESSNESS
     Dosage: 105 MG,QD
     Route: 048
     Dates: start: 20010706, end: 20010712
  20. FRAGMIN [Suspect]
     Active Substance: DALTEPARIN SODIUM
     Indication: THROMBOSIS PROPHYLAXIS
     Dosage: 2500 IU,UNK
     Route: 058
     Dates: start: 20010703, end: 20010714
  21. CIPROFLOXACIN HYDROCHLORIDE. [Suspect]
     Active Substance: CIPROFLOXACIN HYDROCHLORIDE
     Dosage: 1000 MG,QD
     Route: 048
     Dates: start: 20010620, end: 20010628
  22. PANTOPRAZOLE SODIUM. [Suspect]
     Active Substance: PANTOPRAZOLE SODIUM
     Indication: PROPHYLAXIS
     Dosage: 80 MG,QD
     Route: 048
  23. AMARYL [Suspect]
     Active Substance: GLIMEPIRIDE
     Indication: DIABETES MELLITUS
     Dosage: 3 MG,UNK
     Route: 048
     Dates: start: 20010616, end: 20010703
  24. LASIX [Suspect]
     Active Substance: FUROSEMIDE
     Indication: HYPERTENSION
     Dosage: 120 MG,QD
     Route: 042
     Dates: start: 20010703, end: 20010714
  25. HALOPERIDOL. [Suspect]
     Active Substance: HALOPERIDOL
     Indication: RESTLESSNESS
     Dosage: UNK UNK,UNK
     Route: 048
     Dates: start: 20010713, end: 20010714
  26. PARACETAMOL [Suspect]
     Active Substance: ACETAMINOPHEN
     Indication: PAIN
     Dosage: 500 MG,UNK
     Route: 048
     Dates: start: 20010711, end: 20010711
  27. CIPROFLOXACIN HYDROCHLORIDE. [Suspect]
     Active Substance: CIPROFLOXACIN HYDROCHLORIDE
     Indication: PRODUCT USED FOR UNKNOWN INDICATION
     Dosage: 500 MG,QD
     Route: 048
     Dates: start: 20010710, end: 20010711
  28. RAMIPRIL. [Suspect]
     Active Substance: RAMIPRIL
     Indication: CORONARY ARTERY DISEASE
     Dosage: 10 MG,UNK
     Route: 048
     Dates: start: 20010616, end: 20010714
  29. SORTIS [Suspect]
     Active Substance: ATORVASTATIN
     Indication: HYPERLIPIDAEMIA
     Dosage: 20 MG,UNK
     Route: 048
     Dates: start: 20010616, end: 20010703
  30. LEXOTANIL [Concomitant]
     Active Substance: BROMAZEPAM
     Indication: RESTLESSNESS
     Dosage: 1.5 MG, BID
     Route: 048
     Dates: start: 20010713, end: 20010714
  31. MOLSIDOMINE [Suspect]
     Active Substance: MOLSIDOMINE
     Dosage: 16 MG, QD
     Route: 048
  32. IRENAT [Suspect]
     Active Substance: SODIUM PERCHLORATE
     Indication: HYPERTHYROIDISM
     Dosage: UNK UNK,QD
     Route: 048
     Dates: start: 20010618, end: 20010714
  33. ACETYLSALICYLIC ACID [Suspect]
     Active Substance: ASPIRIN
     Indication: CORONARY ARTERY DISEASE
     Dosage: 100 MG,UNK
     Route: 048
     Dates: start: 20010616, end: 20010714
  34. AMPHOTERICIN B. [Suspect]
     Active Substance: AMPHOTERICIN B
     Indication: ANTIFUNGAL PROPHYLAXIS
     Dosage: 200 MG,UNK
     Route: 048
     Dates: start: 20010703, end: 20010714
  35. DECORTIN [Suspect]
     Active Substance: PREDNISONE
     Indication: PRODUCT USED FOR UNKNOWN INDICATION
     Dosage: UNK UNK, UNK
     Route: 065
  36. ISOSORBIDE MONONITRATE. [Suspect]
     Active Substance: ISOSORBIDE MONONITRATE
     Indication: CORONARY ARTERY DISEASE
     Dosage: 1 ?G/L, QD
     Route: 048
     Dates: start: 20010703, end: 20010714
  37. BISOPROLOL FUMARATE. [Concomitant]
     Active Substance: BISOPROLOL FUMARATE
     Indication: PRODUCT USED FOR UNKNOWN INDICATION
     Route: 065
  38. SODIUM PERCHLORATE [Concomitant]
     Active Substance: SODIUM PERCHLORATE
     Indication: PRODUCT USED FOR UNKNOWN INDICATION
     Dosage: UNK
     Route: 065
     Dates: start: 20010618, end: 20010714

REACTIONS (13)
  - Toxic epidermal necrolysis [Fatal]
  - Electrolyte imbalance [Fatal]
  - Cholelithiasis [Fatal]
  - Multiple organ dysfunction syndrome [Fatal]
  - Blister [Unknown]
  - Condition aggravated [Fatal]
  - Nausea [Fatal]
  - Diarrhoea [Fatal]
  - Cholecystitis [Fatal]
  - Hyperthyroidism [Fatal]
  - Dermatitis exfoliative [Unknown]
  - Respiratory disorder [Unknown]
  - Erythema [Unknown]

NARRATIVE: CASE EVENT DATE: 20010703
